FAERS Safety Report 18641768 (Version 1)
Quarter: 2020Q4

REPORT INFORMATION
  Report Type: Spontaneous
  Country: CN (occurrence: CN)
  Receive Date: 20201221
  Receipt Date: 20201221
  Transmission Date: 20210114
  Serious: Yes (Life-Threatening, Hospitalization, Other)
  Sender: FDA-Public Use
  Company Number: CN-ACCORD-211677

PATIENT
  Age: 49 Year
  Sex: Male
  Weight: 78 kg

DRUGS (8)
  1. CISPLATIN. [Suspect]
     Active Substance: CISPLATIN
     Indication: LUNG ADENOCARCINOMA STAGE II
     Dosage: D1, EVERY 21 DAYS
     Dates: start: 20180805
  2. BICYCLO-OCT-EN-YL-ETHYLBARBITU [Concomitant]
     Indication: TRANSAMINASES INCREASED
     Route: 048
     Dates: start: 20180731
  3. FOLIC ACID. [Concomitant]
     Active Substance: FOLIC ACID
     Dosage: 400 MCG/D IN 5 DIVIDED DOSES
     Dates: start: 201807, end: 201808
  4. MAGNESIUM ISOGLYCYRRHIZINATE [Concomitant]
     Active Substance: MAGNESIUM ISOGLYCYRRHIZINATE
     Indication: TRANSAMINASES INCREASED
     Route: 041
     Dates: start: 20180731
  5. CISPLATIN. [Suspect]
     Active Substance: CISPLATIN
     Indication: LUNG ADENOCARCINOMA STAGE II
     Dosage: D2 AND D3, EVERY 21 DAYS
     Dates: start: 20180806
  6. PEMETREXED. [Suspect]
     Active Substance: PEMETREXED
     Indication: LUNG ADENOCARCINOMA STAGE II
     Dosage: D1, EVERY 21 DAYS
     Dates: start: 20180805
  7. SILIBININ [Concomitant]
     Active Substance: SILIBININ
     Indication: TRANSAMINASES INCREASED
     Dosage: AFTER THE PATIENT WAS DISCHARGED
     Route: 048
     Dates: start: 201807
  8. DEXAMETHASONE. [Concomitant]
     Active Substance: DEXAMETHASONE
     Indication: PROPHYLAXIS
     Dates: start: 201808

REACTIONS (6)
  - Hepatocellular injury [Recovered/Resolved]
  - Stomatitis [Recovered/Resolved]
  - Diarrhoea [Recovered/Resolved]
  - Myelosuppression [Recovered/Resolved]
  - Haematemesis [Recovered/Resolved]
  - Vomiting [Recovered/Resolved]

NARRATIVE: CASE EVENT DATE: 201808
